FAERS Safety Report 16614152 (Version 2)
Quarter: 2019Q3

REPORT INFORMATION
  Report Type: Spontaneous
  Country: US (occurrence: US)
  Receive Date: 20190723
  Receipt Date: 20190923
  Transmission Date: 20191004
  Serious: No
  Sender: FDA-Public Use
  Company Number: US-BIOGEN-2019BI00764120

PATIENT
  Sex: Female

DRUGS (1)
  1. AVONEX [Suspect]
     Active Substance: INTERFERON BETA-1A
     Indication: MULTIPLE SCLEROSIS
     Route: 065
     Dates: start: 20060308

REACTIONS (8)
  - Musculoskeletal pain [Not Recovered/Not Resolved]
  - Headache [Recovered/Resolved]
  - Contusion [Unknown]
  - Haemorrhage [Unknown]
  - Morton^s neuralgia [Not Recovered/Not Resolved]
  - Limb injury [Unknown]
  - Meniscus injury [Not Recovered/Not Resolved]
  - Cranial nerve disorder [Unknown]
